FAERS Safety Report 5292288-2 (Version None)
Quarter: 2007Q2

REPORT INFORMATION
  Report Type: 
  Country: None (occurrence: None)
  Receive Date: 20070410
  Receipt Date: 20070330
  Transmission Date: 20071010
  Serious: Yes (Hospitalization)
  Sender: FDA-Public Use
  Company Number: US-BAXTER-2007BH002584

PATIENT
  Age: 69 Year
  Sex: Male
  Weight: 109 kg

DRUGS (3)
  1. BUMINATE 5% [Suspect]
     Indication: POEMS SYNDROME
     Route: 042
     Dates: start: 20070227, end: 20070227
  2. CALCIUM GLUCONATE [Concomitant]
     Indication: POEMS SYNDROME
     Route: 042
     Dates: start: 20070227
  3. POTASSIUM CHLORIDE [Concomitant]
     Indication: POEMS SYNDROME
     Route: 042
     Dates: start: 20070227

REACTIONS (2)
  - ANAPHYLACTIC REACTION [None]
  - CHEST PAIN [None]
